FAERS Safety Report 4930657-8 (Version None)
Quarter: 2006Q1

REPORT INFORMATION
  Report Type: 
  Country: None (occurrence: None)
  Receive Date: 20060227
  Receipt Date: 20060217
  Transmission Date: 20060701
  Serious: Yes (Other)
  Sender: FDA-Public Use
  Company Number: CHPA2006US01988

PATIENT
  Sex: 0

DRUGS (1)
  1. NODOZ (NCH)(CAFFEINE) CAPLET [Suspect]
     Dosage: 8 CAPLETS IN 4 HOURS, ORAL
     Route: 048
     Dates: start: 20060216

REACTIONS (3)
  - HAEMATEMESIS [None]
  - INCORRECT DOSE ADMINISTERED [None]
  - OVERDOSE [None]
